FAERS Safety Report 5258095-1 (Version None)
Quarter: 2007Q1

REPORT INFORMATION
  Report Type: 
  Country: None (occurrence: None)
  Receive Date: 20070307
  Receipt Date: 20070227
  Transmission Date: 20070707
  Serious: Yes (Hospitalization, Other)
  Sender: FDA-Public Use
  Company Number: US-SHR-US-2006-002403

PATIENT
  Age: 62 Year
  Sex: Female
  Weight: 63.492 kg

DRUGS (24)
  1. BETASERON [Suspect]
     Indication: RELAPSING-REMITTING MULTIPLE SCLEROSIS
     Dosage: 8 MIU, EVERY 2D
     Route: 058
     Dates: start: 20030220, end: 20060629
  2. ACETAMINOPHEN [Concomitant]
  3. MIDRIN [Concomitant]
     Indication: HEADACHE
     Dosage: 65 MG, AS REQ'D
     Route: 048
  4. MIDRIN [Concomitant]
     Dosage: 100 MG, AS REQ'D
     Route: 048
  5. MIDRIN [Concomitant]
     Dosage: 325 MG, AS REQ'D
     Route: 048
  6. TYLENOL [Concomitant]
     Indication: POST-TRAUMATIC PAIN
     Dosage: 30 MG, AS REQ'D
     Dates: end: 20060622
  7. AMITRIPTYLINE HCL [Concomitant]
     Dosage: 75 MG, BED T.
     Route: 048
     Dates: end: 20060622
  8. HYDROCODONE [Concomitant]
     Dosage: 5-10 MG/4HRS, AS REQ'D
  9. COUMADIN [Concomitant]
     Indication: DEEP VEIN THROMBOSIS
     Dosage: 4 MG, BED T.
     Route: 048
  10. LIPITOR [Concomitant]
     Dosage: 10 MG, UNK
     Route: 048
     Dates: end: 20060622
  11. BACLOFEN [Concomitant]
     Dosage: INCREASED DOSE
  12. BACLOFEN [Concomitant]
     Dosage: 10 MG, 3X/DAY
     Route: 048
  13. VITAMIN B 1-6-12 [Concomitant]
     Dosage: 1000 MG, 1X/DAY
     Route: 048
  14. POTASSIUM CHLORIDE [Concomitant]
     Dosage: 10 MEQ, UNK
     Route: 048
  15. LASIX [Concomitant]
     Dosage: 20 MG, AS REQ'D
     Route: 048
  16. NEURONTIN [Concomitant]
     Dosage: 1200 MG, 3X/DAY
     Dates: end: 20060622
  17. FOSAMAX [Concomitant]
     Dosage: 70 MG, 1X/WEEK
     Route: 048
  18. PREVACID [Concomitant]
     Dosage: 30 MG, 1X/DAY
     Route: 048
  19. PAXIL [Concomitant]
     Indication: ANXIETY
     Dosage: 12.5 MG, 1-2/DAY, UNK
     Route: 048
  20. ATIVAN [Concomitant]
     Dosage: .5 MG, EVERY 8H
     Route: 048
  21. K-DUR 10 [Concomitant]
     Dosage: 20 MEQ, AS REQ'D
  22. ESTRACE [Concomitant]
     Dosage: UNK, AS REQ'D
     Dates: end: 20060309
  23. ALEVE [Concomitant]
     Dosage: UNK, AS REQ'D
     Dates: end: 20060622
  24. LYRICA [Concomitant]

REACTIONS (14)
  - ABDOMINAL PAIN [None]
  - CONTUSION [None]
  - DEEP VEIN THROMBOSIS [None]
  - DISORIENTATION [None]
  - FALL [None]
  - HAEMATOMA INFECTION [None]
  - HEPATITIS C [None]
  - HEPATOCELLULAR DAMAGE [None]
  - HIP FRACTURE [None]
  - JOINT DISLOCATION [None]
  - OEDEMA PERIPHERAL [None]
  - SKIN PAPILLOMA [None]
  - TREMOR [None]
  - URINARY INCONTINENCE [None]
